FAERS Safety Report 20411359 (Version 1)
Quarter: 2022Q1

REPORT INFORMATION
  Report Type: Spontaneous
  Country: US (occurrence: None)
  Receive Date: 20220201
  Receipt Date: 20220201
  Transmission Date: 20220423
  Serious: Yes (Other)
  Sender: FDA-Public Use
  Company Number: None

PATIENT
  Age: 65 Year
  Sex: Female

DRUGS (1)
  1. EVEROLIMUS [Suspect]
     Active Substance: EVEROLIMUS
     Indication: Renal transplant
     Dosage: FREQUENCY : TWICE A DAY;?
     Route: 048
     Dates: start: 202010

REACTIONS (6)
  - Pain [None]
  - Skin cancer [None]
  - COVID-19 [None]
  - Lymphadenopathy [None]
  - Swelling [None]
  - Macular hole [None]

NARRATIVE: CASE EVENT DATE: 20210513
